FAERS Safety Report 23526460 (Version 1)
Quarter: 2024Q1

REPORT INFORMATION
  Report Type: Spontaneous
  Country: US (occurrence: None)
  Receive Date: 20240214
  Receipt Date: 20240214
  Transmission Date: 20240410
  Serious: Yes (Life-Threatening, Hospitalization, Other)
  Sender: FDA-Public Use
  Company Number: None

PATIENT
  Age: 54 Year
  Sex: Male
  Weight: 108 kg

DRUGS (2)
  1. ALLOPURINOL [Suspect]
     Active Substance: ALLOPURINOL
     Indication: Tumour lysis syndrome
     Dosage: FREQUENCY : DAILY;?
     Route: 048
     Dates: start: 20231212, end: 20231226
  2. ALLOPURINOL [Suspect]
     Active Substance: ALLOPURINOL
     Indication: Prophylaxis

REACTIONS (3)
  - Stevens-Johnson syndrome [None]
  - Bacteraemia [None]
  - Pneumonia [None]

NARRATIVE: CASE EVENT DATE: 20240130
